FAERS Safety Report 9956855 (Version 1)
Quarter: 2014Q1

REPORT INFORMATION
  Report Type: Report from Study
  Country: US (occurrence: US)
  Receive Date: 20140304
  Receipt Date: 20140304
  Transmission Date: 20141002
  Serious: No
  Sender: FDA-Public Use
  Company Number: US-ABBVIE-13P-163-1098741-00

PATIENT
  Sex: Male

DRUGS (8)
  1. HUMIRA [Suspect]
     Indication: COLITIS ULCERATIVE
  2. ASACOL HD [Concomitant]
     Indication: COLITIS ULCERATIVE
  3. UCERIS [Concomitant]
     Indication: COLITIS ULCERATIVE
  4. GENERIC LIPITOR [Concomitant]
     Indication: BLOOD CHOLESTEROL INCREASED
  5. TRAZODONE [Concomitant]
     Indication: INSOMNIA
     Dosage: AT BEDTIME
  6. GENERIC AMBIEN [Concomitant]
     Indication: INSOMNIA
     Dosage: AT BEDTIME
  7. GENERIC FLONASE [Concomitant]
     Indication: HYPERSENSITIVITY
     Dosage: DAILY
  8. MULTIVITAMIN [Concomitant]
     Indication: SUPPLEMENTATION THERAPY

REACTIONS (2)
  - Injection site pain [Recovered/Resolved]
  - Injection site haemorrhage [Recovered/Resolved]
